FAERS Safety Report 10334009 (Version 1)
Quarter: 2014Q3

REPORT INFORMATION
  Report Type: Spontaneous
  Country: US (occurrence: US)
  Receive Date: 20140723
  Receipt Date: 20140723
  Transmission Date: 20150326
  Serious: No
  Sender: FDA-Public Use
  Company Number: US-UNITED THERAPEUTICS-UTC-046597

PATIENT
  Sex: Female
  Weight: 111.13 kg

DRUGS (1)
  1. REMODULIN [Suspect]
     Active Substance: TREPROSTINIL
     Dosage: 0.05 UG/KG/MIN
     Route: 041
     Dates: start: 20120508

REACTIONS (2)
  - Device breakage [Unknown]
  - Drug dose omission [Unknown]
